FAERS Safety Report 25816059 (Version 2)
Quarter: 2025Q4

REPORT INFORMATION
  Report Type: Spontaneous
  Country: CH (occurrence: None)
  Receive Date: 20250918
  Receipt Date: 20251013
  Transmission Date: 20260117
  Serious: Yes (Disabling)
  Sender: ORGANON
  Company Number: CH-MLMSERVICE-20250908-PI638285-00064-1

PATIENT
  Age: 72 Year
  Sex: Female
  Weight: 65 kg

DRUGS (2)
  1. BETAMETHASONE [Suspect]
     Active Substance: BETAMETHASONE
     Indication: Back pain
     Dosage: UNK
  2. BUPIVACAINE [Suspect]
     Active Substance: BUPIVACAINE
     Indication: Back pain
     Dosage: UNK

REACTIONS (2)
  - Conus medullaris syndrome [Not Recovered/Not Resolved]
  - Incorrect route of product administration [Unknown]
